FAERS Safety Report 8471991 (Version 2)
Quarter: 2013Q1

REPORT INFORMATION
  Report Type: Spontaneous
  Country: US (occurrence: US)
  Receive Date: 20120322
  Receipt Date: 20130322
  Transmission Date: 20140127
  Serious: Yes (Hospitalization)
  Sender: FDA-Public Use
  Company Number: US-BRISTOL-MYERS SQUIBB COMPANY-16280034

PATIENT
  Age: 7 Decade
  Sex: Male

DRUGS (2)
  1. ERBITUX [Suspect]
     Indication: HEAD AND NECK CANCER METASTATIC
  2. DECADRON [Concomitant]
     Indication: PREMEDICATION

REACTIONS (2)
  - Blood pressure decreased [Unknown]
  - Pruritus [Unknown]
